FAERS Safety Report 7521611-0 (Version None)
Quarter: 2011Q2

REPORT INFORMATION
  Report Type: 
  Country: None (occurrence: None)
  Receive Date: 20110524
  Receipt Date: 20110511
  Transmission Date: 20111010
  Serious: Yes (Hospitalization)
  Sender: FDA-Public Use
  Company Number: CIP11000561

PATIENT
  Age: 80 Year
  Sex: Female

DRUGS (14)
  1. ACTONEL [Suspect]
     Indication: OSTEOPOROSIS
     Dosage: 35 MG ONCE WEEKLY, ORAL
     Route: 048
     Dates: start: 20021210, end: 20060101
  2. LEVOXYL [Concomitant]
  3. ZITHROMAX [Concomitant]
  4. AMOXICILLIN [Concomitant]
  5. CITRACAL (CALCIUM CITRATE) [Concomitant]
  6. FOSAMAX [Suspect]
     Indication: OSTEOPOROSIS
     Dosage: 70 MG WEEKLY, ORAL; 10 MG DAILY, ORAL
     Route: 048
     Dates: start: 20001207, end: 20021210
  7. PATANOL [Concomitant]
  8. TOPROL-XL [Concomitant]
  9. RHINOCORT AQUA (BUDESPMYCIN) [Concomitant]
  10. FOSAMAX PLUS D [Suspect]
     Indication: OSTEOPOROSIS
     Dosage: ORAL
     Route: 048
     Dates: start: 20070307, end: 20080310
  11. HYDROCODONE BITARTRATE AND ACETAMINOPHEN (HYDROCODONE BITARTRATE, PARA [Concomitant]
  12. ALENDRONATE SODIUM [Suspect]
     Indication: OSTEOPOROSIS
     Dosage: 70 MG, WEEKLY, ORAL
     Route: 048
     Dates: start: 20080301
  13. MULTIVITAMIN (ASCORBIC ACID, CALCIUM PANTOTHENATE, ERGOCALCIFEROL, NIC [Concomitant]
  14. METHOCARBAMOL [Concomitant]

REACTIONS (7)
  - FEMUR FRACTURE [None]
  - FALL [None]
  - GAIT DISTURBANCE [None]
  - PULMONARY EMBOLISM [None]
  - PRODUCT SUBSTITUTION ISSUE [None]
  - STRESS FRACTURE [None]
  - RADIUS FRACTURE [None]
